FAERS Safety Report 16768214 (Version 1)
Quarter: 2019Q3

REPORT INFORMATION
  Report Type: Spontaneous
  Country: US (occurrence: US)
  Receive Date: 20190903
  Receipt Date: 20190903
  Transmission Date: 20191005
  Serious: No
  Sender: FDA-Public Use
  Company Number: US-JNJFOC-20190822022

PATIENT
  Age: 61 Year
  Sex: Male
  Weight: 111.23 kg

DRUGS (1)
  1. TREMFYA [Suspect]
     Active Substance: GUSELKUMAB
     Indication: PSORIASIS
     Dosage: RX # 7141200
     Route: 058

REACTIONS (3)
  - Injury associated with device [Recovered/Resolved]
  - Application site haemorrhage [Recovered/Resolved]
  - Syringe issue [Unknown]

NARRATIVE: CASE EVENT DATE: 20190818
